FAERS Safety Report 8559236-0 (Version None)
Quarter: 2012Q3

REPORT INFORMATION
  Report Type: 
  Country: None (occurrence: None)
  Receive Date: 20120720
  Receipt Date: 20120709
  Transmission Date: 20120928
  Serious: Yes (Death, Life-Threatening, Other)
  Sender: FDA-Public Use
  Company Number: AUR-APL-2012-03044

PATIENT
  Sex: Female

DRUGS (5)
  1. PYRIDOXIN (PYRIDOXINE HYDORCHLORIDE) [Suspect]
     Indication: MYOCLONIC EPILEPSY
     Dosage: UNKNOWN
  2. TOPIRAMATE [Suspect]
     Indication: MYOCLONIC EPILEPSY
     Dosage: UNKNOWN
  3. VALPROATE SODIUM [Suspect]
     Indication: MYOCLONIC EPILEPSY
     Dosage: UNKNOWN
  4. PHENYTOIN (PHENYTOIN) [Suspect]
     Indication: MYOCLONIC EPILEPSY
     Dosage: UNKNOWN
  5. PHENOBARBITAL TAB [Suspect]
     Indication: MYOCLONIC EPILEPSY
     Dosage: UNKNOWN

REACTIONS (4)
  - NONKETOTIC HYPERGLYCINAEMIA [None]
  - CONTRAINDICATION TO MEDICAL TREATMENT [None]
  - DRUG INEFFECTIVE [None]
  - EPILEPSY [None]
